FAERS Safety Report 4413525-X (Version None)
Quarter: 2004Q3

REPORT INFORMATION
  Report Type: 
  Country: None (occurrence: None)
  Receive Date: 20040802
  Receipt Date: 20020624
  Transmission Date: 20050211
  Serious: Yes (Hospitalization, Other)
  Sender: FDA-Public Use
  Company Number: US-MERCK-0206USA02437

PATIENT
  Age: 43 Year
  Sex: Female
  Weight: 80 kg

DRUGS (8)
  1. CARDURA [Concomitant]
     Route: 065
  2. NORMODYNE [Concomitant]
     Route: 065
  3. PREVACID [Concomitant]
     Route: 065
  4. FLAGYL [Concomitant]
     Route: 065
  5. MINOXIDIL [Concomitant]
     Route: 065
  6. PROCARDIA XL [Concomitant]
     Route: 065
  7. VIOXX [Suspect]
     Indication: OSTEOARTHRITIS
     Route: 048
     Dates: start: 20000801, end: 20000808
  8. VIOXX [Suspect]
     Route: 048
     Dates: start: 20000809, end: 20010501

REACTIONS (113)
  - ABDOMINAL ABSCESS [None]
  - ABDOMINAL PAIN [None]
  - ABNORMAL FAECES [None]
  - ADENOMYOSIS [None]
  - AMNESIA [None]
  - ANGINA PECTORIS [None]
  - ANOREXIA [None]
  - ANXIETY [None]
  - AORTIC VALVE INCOMPETENCE [None]
  - ARRHYTHMIA [None]
  - ARTHRALGIA [None]
  - ARTHRITIS [None]
  - ASTHENIA [None]
  - ATRIOVENTRICULAR BLOCK [None]
  - AUDITORY RECRUITMENT [None]
  - BACK PAIN [None]
  - BRONCHITIS [None]
  - CARDIAC VALVE DISEASE [None]
  - CARDIOMYOPATHY [None]
  - CELLULITIS [None]
  - CHEST DISCOMFORT [None]
  - CHEST PAIN [None]
  - COMA [None]
  - CONSTIPATION [None]
  - CONVULSION [None]
  - COSTOCHONDRITIS [None]
  - COUGH [None]
  - DENTAL CARIES [None]
  - DERMATITIS [None]
  - DIARRHOEA [None]
  - DIASTOLIC DYSFUNCTION [None]
  - DILATATION ATRIAL [None]
  - DILATATION VENTRICULAR [None]
  - DIVERTICULITIS [None]
  - DIZZINESS [None]
  - DRUG WITHDRAWAL SYNDROME [None]
  - DUODENAL ULCER [None]
  - DUODENITIS [None]
  - DYSPEPSIA [None]
  - DYSPHAGIA [None]
  - DYSPNOEA [None]
  - DYSPNOEA EXERTIONAL [None]
  - DYSURIA [None]
  - EMOTIONAL DISTRESS [None]
  - ENCEPHALOPATHY [None]
  - FACE OEDEMA [None]
  - FATIGUE [None]
  - FEELING ABNORMAL [None]
  - GASTRITIS [None]
  - GRAND MAL CONVULSION [None]
  - HAEMATOMA INFECTION [None]
  - HAEMORRHAGE [None]
  - HAEMORRHOIDS [None]
  - HELICOBACTER GASTRITIS [None]
  - HYPERHIDROSIS [None]
  - HYPERTENSION [None]
  - HYPERTENSIVE CRISIS [None]
  - HYPOAESTHESIA [None]
  - HYPOKALAEMIA [None]
  - HYPOTENSION [None]
  - INFUSION SITE PAIN [None]
  - INFUSION SITE REACTION [None]
  - INFUSION SITE SWELLING [None]
  - IRRITABLE BOWEL SYNDROME [None]
  - JOINT CONTRACTURE [None]
  - LACERATION [None]
  - LEIOMYOMA [None]
  - LOSS OF CONSCIOUSNESS [None]
  - MALIGNANT HYPERTENSION [None]
  - MELAENA [None]
  - MEMORY IMPAIRMENT [None]
  - MENTAL DISORDER [None]
  - MENTAL STATUS CHANGES [None]
  - MICTURITION URGENCY [None]
  - MITRAL VALVE INCOMPETENCE [None]
  - MYOCARDIAL INFARCTION [None]
  - MYOCARDIAL ISCHAEMIA [None]
  - NAUSEA [None]
  - NECK PAIN [None]
  - NON-CARDIAC CHEST PAIN [None]
  - NUCLEAR MAGNETIC RESONANCE IMAGING BRAIN ABNORMAL [None]
  - OEDEMA [None]
  - OEDEMA PERIPHERAL [None]
  - OESOPHAGITIS [None]
  - ORTHOPNOEA [None]
  - OSTEOARTHRITIS [None]
  - OVARIAN CYST [None]
  - PAIN IN EXTREMITY [None]
  - PALPITATIONS [None]
  - PARANOIA [None]
  - PELVIC INFLAMMATORY DISEASE [None]
  - PEPTIC ULCER [None]
  - PHARYNGOLARYNGEAL PAIN [None]
  - PYREXIA [None]
  - RASH GENERALISED [None]
  - REFLEX SYMPATHETIC DYSTROPHY [None]
  - REFUSAL OF TREATMENT BY PATIENT [None]
  - RENAL FAILURE [None]
  - SALPINGITIS [None]
  - SENSORY LOSS [None]
  - STARING [None]
  - SUICIDAL IDEATION [None]
  - SUPRAVENTRICULAR TACHYCARDIA [None]
  - TINNITUS [None]
  - TONIC CLONIC MOVEMENTS [None]
  - TRICUSPID VALVE INCOMPETENCE [None]
  - UPPER RESPIRATORY TRACT INFECTION [None]
  - UTERINE ENLARGEMENT [None]
  - VAGINAL DISCHARGE [None]
  - VAGINAL HAEMORRHAGE [None]
  - VENTRICULAR HYPERTROPHY [None]
  - VISION BLURRED [None]
  - VULVOVAGINAL DISCOMFORT [None]
